FAERS Safety Report 9204314 (Version 2)
Quarter: 2013Q2

REPORT INFORMATION
  Report Type: Report from Study
  Country: DE (occurrence: DE)
  Receive Date: 20130402
  Receipt Date: 20130604
  Transmission Date: 20140414
  Serious: Yes (Death)
  Sender: FDA-Public Use
  Company Number: DE-ROCHE-1207391

PATIENT
  Age: 63 Year
  Sex: Female
  Weight: 55.4 kg

DRUGS (8)
  1. BEVACIZUMAB [Suspect]
     Indication: COLON CANCER
     Dosage: DATE OF LAST DOSE PRIOR TO SAE: 11/MAR/2013
     Route: 042
     Dates: start: 20130208
  2. BEVACIZUMAB [Suspect]
     Indication: RECTAL CANCER
  3. OXALIPLATIN [Suspect]
     Indication: COLON CANCER
     Dosage: DATE OF LAST DOSE  PRIOR TO SAE: 11/MAR/2013
     Route: 042
     Dates: start: 20130208
  4. OXALIPLATIN [Suspect]
     Indication: RECTAL CANCER
  5. FOLINIC ACID [Suspect]
     Indication: COLON CANCER
     Route: 042
  6. FOLINIC ACID [Suspect]
     Indication: RECTAL CANCER
  7. 5-FU [Suspect]
     Indication: COLON CANCER
     Route: 040
  8. 5-FU [Suspect]
     Indication: RECTAL CANCER
     Route: 050

REACTIONS (1)
  - Cerebrospinal fluid retention [Fatal]
